FAERS Safety Report 25931694 (Version 1)
Quarter: 2025Q4

REPORT INFORMATION
  Report Type: Spontaneous
  Country: US (occurrence: None)
  Receive Date: 20251016
  Receipt Date: 20251016
  Transmission Date: 20260118
  Serious: No
  Sender: FDA-CTU
  Company Number: None

PATIENT

DRUGS (1)
  1. VRAYLAR [Suspect]
     Active Substance: CARIPRAZINE

REACTIONS (4)
  - Therapy cessation [None]
  - Homicidal ideation [None]
  - Dyspnoea [None]
  - Chest pain [None]
